FAERS Safety Report 9909657 (Version 2)
Quarter: 2014Q1

REPORT INFORMATION
  Report Type: Spontaneous
  Country: TR (occurrence: TR)
  Receive Date: 20140219
  Receipt Date: 20140310
  Transmission Date: 20141002
  Serious: Yes (Other)
  Sender: FDA-Public Use
  Company Number: TR-GLAXOSMITHKLINE-B0970270A

PATIENT
  Age: 26 Year
  Sex: Male
  Weight: 95 kg

DRUGS (1)
  1. ZYBAN [Suspect]
     Indication: EX-TOBACCO USER
     Route: 048
     Dates: start: 20140109, end: 20140119

REACTIONS (4)
  - Rheumatoid arthritis [Recovering/Resolving]
  - Pruritus [Recovering/Resolving]
  - Urticaria [Recovering/Resolving]
  - Product quality issue [Unknown]
